FAERS Safety Report 6125943-2 (Version None)
Quarter: 2009Q1

REPORT INFORMATION
  Report Type: 
  Country: None (occurrence: None)
  Receive Date: 20090320
  Receipt Date: 20090312
  Transmission Date: 20090719
  Serious: Yes (Other)
  Sender: FDA-Public Use
  Company Number: PHEH2009US01934

PATIENT
  Sex: Female

DRUGS (4)
  1. SANDOSTATIN LAR [Suspect]
     Dosage: 60 MG, UNK
     Dates: start: 20030101
  2. SANDOSTATIN LAR [Suspect]
     Dosage: 50 MG, UNK
     Dates: end: 20081101
  3. SANDOSTATIN LAR [Suspect]
     Dosage: UNK
  4. LANREOTIDE [Suspect]
     Dosage: UNK
     Dates: start: 20081101

REACTIONS (7)
  - BLOOD GLUCOSE INCREASED [None]
  - INCORRECT DOSE ADMINISTERED [None]
  - LIVER DISORDER [None]
  - MASS [None]
  - MOBILITY DECREASED [None]
  - MYALGIA [None]
  - TRANSAMINASES INCREASED [None]
